FAERS Safety Report 10584905 (Version 3)
Quarter: 2015Q2

REPORT INFORMATION
  Report Type: Spontaneous
  Country: US (occurrence: US)
  Receive Date: 20141114
  Receipt Date: 20150601
  Transmission Date: 20150821
  Serious: Yes (Hospitalization, Disabling, Other)
  Sender: FDA-Public Use
  Company Number: US-009507513-1411USA006705

PATIENT
  Sex: Female
  Weight: 63.95 kg

DRUGS (3)
  1. FOSAMAX [Suspect]
     Active Substance: ALENDRONATE SODIUM
     Indication: OSTEOPOROSIS
     Dosage: 10 MG, UNK
     Route: 048
     Dates: start: 1999, end: 200301
  2. ALENDRONATE SODIUM. [Suspect]
     Active Substance: ALENDRONATE SODIUM
     Indication: OSTEOPOROSIS
     Dosage: 70 MG, QW
     Route: 048
     Dates: start: 2008, end: 2013
  3. FOSAMAX [Suspect]
     Active Substance: ALENDRONATE SODIUM
     Dosage: 70 MG, UNK
     Route: 048
     Dates: start: 20030108, end: 2008

REACTIONS (30)
  - Femur fracture [Not Recovered/Not Resolved]
  - Blood glucose increased [Unknown]
  - Adverse event [Unknown]
  - Cholecystectomy [Unknown]
  - Osteoarthritis [Not Recovered/Not Resolved]
  - Back pain [Unknown]
  - Limb injury [Unknown]
  - Vertebral lesion [Unknown]
  - Low turnover osteopathy [Not Recovered/Not Resolved]
  - Ankle fracture [Unknown]
  - Leukocytosis [Unknown]
  - Rosacea [Unknown]
  - Spinal osteoarthritis [Unknown]
  - Nausea [Unknown]
  - Gastrooesophageal reflux disease [Unknown]
  - Pain in extremity [Unknown]
  - Chronic hepatitis B [Recovering/Resolving]
  - Intramedullary rod insertion [Unknown]
  - Hypotension [Unknown]
  - Cardiomegaly [Unknown]
  - Glaucoma [Unknown]
  - Anaemia postoperative [Unknown]
  - Abdominal pain [Unknown]
  - Aortic disorder [Unknown]
  - Arthralgia [Unknown]
  - Femur fracture [Not Recovered/Not Resolved]
  - Foot fracture [Unknown]
  - Exostosis [Unknown]
  - Vomiting [Unknown]
  - Fall [Unknown]

NARRATIVE: CASE EVENT DATE: 2000
